FAERS Safety Report 5481581-6 (Version None)
Quarter: 2007Q4

REPORT INFORMATION
  Report Type: 
  Country: None (occurrence: None)
  Receive Date: 20071010
  Receipt Date: 20070927
  Transmission Date: 20080405
  Serious: No
  Sender: FDA-Public Use
  Company Number: US-JNJFOC-20071000543

PATIENT
  Age: 65 Year
  Sex: Male

DRUGS (3)
  1. INVEGA [Suspect]
     Indication: BRAIN DAMAGE
     Route: 048
  2. INVEGA [Suspect]
     Indication: ANXIETY
     Route: 048
  3. CYMBALTA [Concomitant]

REACTIONS (1)
  - RASH GENERALISED [None]
